FAERS Safety Report 25685349 (Version 1)
Quarter: 2025Q3

REPORT INFORMATION
  Report Type: Spontaneous
  Country: US (occurrence: None)
  Receive Date: 20250814
  Receipt Date: 20250814
  Transmission Date: 20251020
  Serious: Yes (Other)
  Sender: FDA-CTU
  Company Number: None

PATIENT
  Age: 76 Year
  Sex: Male
  Weight: 63 kg

DRUGS (1)
  1. VENOFER [Suspect]
     Active Substance: IRON SUCROSE
     Indication: Anaemia
     Route: 040
     Dates: start: 20250808, end: 20250808

REACTIONS (3)
  - Blood pressure decreased [None]
  - Asthenia [None]
  - Drug hypersensitivity [None]

NARRATIVE: CASE EVENT DATE: 20250808
